FAERS Safety Report 23133783 (Version 1)
Quarter: 2023Q4

REPORT INFORMATION
  Report Type: Spontaneous
  Country: CN (occurrence: CN)
  Receive Date: 20231101
  Receipt Date: 20231101
  Transmission Date: 20240110
  Serious: Yes (Life-Threatening)
  Sender: FDA-Public Use
  Company Number: CN-BAYER-2023A156253

PATIENT
  Age: 68 Year
  Sex: Female
  Weight: 57.5 kg

DRUGS (2)
  1. ULTRAVIST [Suspect]
     Active Substance: IOPROMIDE
     Indication: Angiogram
     Dosage: 75 ML, ONCE
     Route: 041
     Dates: start: 20231030, end: 20231030
  2. ULTRAVIST [Suspect]
     Active Substance: IOPROMIDE
     Indication: Coronary artery disease

REACTIONS (5)
  - Shock [Unknown]
  - Respiratory arrest [Unknown]
  - Carotid pulse abnormal [Unknown]
  - Pruritus [Unknown]
  - Incorrect drug administration rate [None]

NARRATIVE: CASE EVENT DATE: 20231030
